FAERS Safety Report 6032048-8 (Version None)
Quarter: 2009Q1

REPORT INFORMATION
  Report Type: 
  Country: None (occurrence: None)
  Receive Date: 20090107
  Receipt Date: 20081223
  Transmission Date: 20090719
  Serious: Yes (Hospitalization)
  Sender: FDA-Public Use
  Company Number: 230033K08CAN

PATIENT
  Sex: Female

DRUGS (7)
  1. REBIF [Suspect]
     Indication: MULTIPLE SCLEROSIS
     Dosage: 44 MCG, 3 IN 1 WEEKS
     Dates: start: 20080904
  2. REBIF [Suspect]
     Indication: RELAPSING-REMITTING MULTIPLE SCLEROSIS
     Dosage: 44 MCG, 3 IN 1 WEEKS
     Dates: start: 20080904
  3. TYLENOL ( COTYLENOL ) [Concomitant]
  4. ADVIL [Concomitant]
  5. . [Suspect]
  6. . [Concomitant]
  7. . [Concomitant]

REACTIONS (4)
  - ABASIA [None]
  - CYSTITIS [None]
  - FEELING ABNORMAL [None]
  - HYPOAESTHESIA [None]
